FAERS Safety Report 4610071-5 (Version None)
Quarter: 2005Q1

REPORT INFORMATION
  Report Type: 
  Country: None (occurrence: None)
  Receive Date: 20050316
  Receipt Date: 20040916
  Transmission Date: 20050727
  Serious: Yes (Hospitalization)
  Sender: FDA-Public Use
  Company Number: PHHO2004JP13213

PATIENT
  Age: 35 Year
  Sex: Male
  Weight: 55 kg

DRUGS (5)
  1. GLEEVEC [Suspect]
     Indication: GASTROINTESTINAL STROMAL TUMOUR
     Dosage: 400 MG, BID
     Route: 048
     Dates: start: 20031206, end: 20040916
  2. GLEEVEC [Suspect]
     Dosage: 300 MG, BID
     Route: 048
     Dates: start: 20040920, end: 20041026
  3. GLEEVEC [Suspect]
     Dosage: 400 MG, QD
     Route: 048
     Dates: start: 20041106
  4. LOPEMIN [Concomitant]
  5. LASIX [Concomitant]

REACTIONS (6)
  - ABDOMINAL PAIN [None]
  - ABSCESS DRAINAGE [None]
  - ANOREXIA [None]
  - BACK PAIN [None]
  - JAUNDICE CHOLESTATIC [None]
  - LIVER ABSCESS [None]
